FAERS Safety Report 4752881-X (Version None)
Quarter: 2005Q3

REPORT INFORMATION
  Report Type: 
  Country: None (occurrence: None)
  Receive Date: 20050823
  Receipt Date: 20050810
  Transmission Date: 20060218
  Serious: Yes (Other)
  Sender: FDA-Public Use
  Company Number: 8011138

PATIENT
  Age: 10 Year
  Sex: Male

DRUGS (2)
  1. KEPPRA [Suspect]
     Indication: SYDENHAM'S CHOREA
     Dosage: 500 MG 2/D PO
     Route: 048
  2. KEPPRA [Suspect]
     Indication: SYDENHAM'S CHOREA
     Dosage: 250 MG 2/D PO
     Route: 048

REACTIONS (2)
  - NEUTROPHIL COUNT DECREASED [None]
  - WHITE BLOOD CELL COUNT DECREASED [None]
